FAERS Safety Report 5854567-7 (Version None)
Quarter: 2008Q3

REPORT INFORMATION
  Report Type: 
  Country: None (occurrence: None)
  Receive Date: 20080822
  Receipt Date: 20071017
  Transmission Date: 20090109
  Serious: No
  Sender: FDA-Public Use
  Company Number: US-ABBOTT-07P-163-0421075-00

PATIENT
  Age: 2 Year
  Sex: Female

DRUGS (1)
  1. SYNTHROID [Suspect]
     Indication: DRUG USE FOR UNKNOWN INDICATION
     Dosage: 8 TABS AT ONCE
     Route: 048
     Dates: start: 20071017, end: 20071017

REACTIONS (1)
  - OVERDOSE [None]
